FAERS Safety Report 24891836 (Version 3)
Quarter: 2025Q3

REPORT INFORMATION
  Report Type: Report from Study
  Country: US (occurrence: US)
  Receive Date: 20250127
  Receipt Date: 20250825
  Transmission Date: 20251020
  Serious: Yes (Other)
  Sender: UCB
  Company Number: US-UCBSA-2025004366

PATIENT
  Age: 12 Year
  Sex: Male
  Weight: 32 kg

DRUGS (1)
  1. FINTEPLA [Suspect]
     Active Substance: FENFLURAMINE
     Indication: Seizure

REACTIONS (1)
  - Pulmonary valve incompetence [Not Recovered/Not Resolved]

NARRATIVE: CASE EVENT DATE: 20250121
